FAERS Safety Report 15369735 (Version 1)
Quarter: 2018Q3

REPORT INFORMATION
  Report Type: Spontaneous
  Country: US (occurrence: US)
  Receive Date: 20180904
  Receipt Date: 20180904
  Transmission Date: 20181010
  Serious: Yes (Other)
  Sender: FDA-Public Use
  Company Number: None

PATIENT
  Age: 16 Year
  Sex: Male
  Weight: 54 kg

DRUGS (2)
  1. CYCLOBENZAPRINE. [Suspect]
     Active Substance: CYCLOBENZAPRINE
     Indication: TORTICOLLIS
     Dosage: ?          QUANTITY:3 TABLET(S);?
     Route: 048
     Dates: start: 20180829, end: 20180904
  2. ADVIL [Concomitant]
     Active Substance: IBUPROFEN

REACTIONS (5)
  - Unevaluable event [None]
  - Pyrexia [None]
  - Vision blurred [None]
  - Somnolence [None]
  - Abdominal pain upper [None]

NARRATIVE: CASE EVENT DATE: 20180902
